FAERS Safety Report 23165508 (Version 2)
Quarter: 2023Q4

REPORT INFORMATION
  Report Type: Report from Study
  Country: US (occurrence: US)
  Receive Date: 20231109
  Receipt Date: 20231129
  Transmission Date: 20240110
  Serious: Yes (Hospitalization, Other)
  Sender: FDA-Public Use
  Company Number: US-002147023-NVSC2023US236792

PATIENT
  Age: 52 Year
  Sex: Female

DRUGS (6)
  1. TAFINLAR [Suspect]
     Active Substance: DABRAFENIB MESYLATE
     Indication: Malignant melanoma stage IV
     Dosage: UNK (100 PERCENT)
     Route: 065
     Dates: start: 202007
  2. TAFINLAR [Suspect]
     Active Substance: DABRAFENIB MESYLATE
     Dosage: UNK (75 PERCENT)
     Route: 065
     Dates: start: 202008
  3. TAFINLAR [Suspect]
     Active Substance: DABRAFENIB MESYLATE
     Dosage: UNK (50 PERCENT SPRING 2023)
     Route: 065
     Dates: start: 2023
  4. MEKINIST [Suspect]
     Active Substance: TRAMETINIB DIMETHYL SULFOXIDE
     Indication: Malignant melanoma stage IV
     Dosage: UNK (100 PERCENT)
     Route: 065
     Dates: start: 202007
  5. MEKINIST [Suspect]
     Active Substance: TRAMETINIB DIMETHYL SULFOXIDE
     Dosage: UNK (75 PERCENT)
     Route: 065
     Dates: start: 202008
  6. MEKINIST [Suspect]
     Active Substance: TRAMETINIB DIMETHYL SULFOXIDE
     Dosage: UNK (50 PERCENT SPRING 2023)
     Route: 065
     Dates: start: 2023

REACTIONS (5)
  - Renal failure [Recovering/Resolving]
  - Blindness [Recovered/Resolved]
  - Brain neoplasm [Unknown]
  - Chills [Recovering/Resolving]
  - Fatigue [Recovering/Resolving]

NARRATIVE: CASE EVENT DATE: 20200701
